FAERS Safety Report 19654804 (Version 4)
Quarter: 2021Q4

REPORT INFORMATION
  Report Type: Spontaneous
  Country: JP (occurrence: JP)
  Receive Date: 20210804
  Receipt Date: 20211121
  Transmission Date: 20220304
  Serious: Yes (Other)
  Sender: FDA-Public Use
  Company Number: JP-MSD-M2021-18288

PATIENT
  Age: 74 Year
  Sex: Male

DRUGS (6)
  1. KEYTRUDA [Suspect]
     Active Substance: PEMBROLIZUMAB
     Indication: Non-small cell lung cancer stage IV
     Dosage: 200 MILLIGRAM, Q3W
     Route: 041
     Dates: start: 20210708, end: 20210708
  2. KEYTRUDA [Suspect]
     Active Substance: PEMBROLIZUMAB
     Dosage: 200 MILLIGRAM, Q3W
     Route: 041
     Dates: start: 20210830
  3. CARBOPLATIN [Concomitant]
     Active Substance: CARBOPLATIN
     Dosage: 300 MILLIGRAM/SQ. METER, Q3W
     Route: 041
     Dates: start: 20210708, end: 20210708
  4. CARBOPLATIN [Concomitant]
     Active Substance: CARBOPLATIN
     Dosage: 300 MILLIGRAM/SQ. METER, Q3W
     Route: 041
     Dates: start: 20210830
  5. PACLITAXEL [Concomitant]
     Active Substance: PACLITAXEL
     Dosage: 100 MILLIGRAM/SQ. METER, QW
     Route: 041
     Dates: start: 20210708, end: 20210708
  6. PACLITAXEL [Concomitant]
     Active Substance: PACLITAXEL
     Dosage: 210 MILLIGRAM/SQ. METER, Q3W
     Route: 041
     Dates: start: 20210830

REACTIONS (2)
  - Thrombocytopenia [Recovered/Resolved]
  - Nausea [Recovered/Resolved]

NARRATIVE: CASE EVENT DATE: 20210729
